FAERS Safety Report 20182009 (Version 1)
Quarter: 2021Q4

REPORT INFORMATION
  Report Type: Spontaneous
  Country: AT (occurrence: AT)
  Receive Date: 20211214
  Receipt Date: 20211214
  Transmission Date: 20220303
  Serious: Yes (Other)
  Sender: FDA-Public Use
  Company Number: None

PATIENT
  Age: 61 Year
  Sex: Female

DRUGS (1)
  1. CIPROFLOXACIN [Suspect]
     Active Substance: CIPROFLOXACIN
     Indication: Infection
     Dosage: ACCORDING TO THE SPECIALIST INFORMATION AND RECOMMENDATIONS FOR USE, RATIOPHARM
     Dates: start: 20211013, end: 20211013

REACTIONS (3)
  - Dyspnoea [Unknown]
  - Type I hypersensitivity [Unknown]
  - Pruritus [Unknown]

NARRATIVE: CASE EVENT DATE: 20211013
